FAERS Safety Report 7097435-8 (Version None)
Quarter: 2010Q4

REPORT INFORMATION
  Report Type: 
  Country: None (occurrence: None)
  Receive Date: 20101111
  Receipt Date: 20101102
  Transmission Date: 20110411
  Serious: Yes (Other)
  Sender: FDA-Public Use
  Company Number: FR-GILEAD-2010-0033154

PATIENT
  Sex: Male

DRUGS (7)
  1. TRUVADA [Suspect]
     Indication: HIV INFECTION
     Route: 048
     Dates: start: 20090101
  2. NORVIR [Suspect]
     Route: 048
     Dates: start: 20090101
  3. PREZISTA [Suspect]
     Route: 048
     Dates: start: 20090101
  4. PENTACARINAT [Suspect]
     Route: 055
     Dates: start: 20100101
  5. LYRICA [Suspect]
     Route: 048
     Dates: start: 20100101
  6. AMIKACIN [Suspect]
     Route: 042
     Dates: start: 20100924
  7. ANSATIPINE [Suspect]
     Route: 048
     Dates: start: 20090101

REACTIONS (1)
  - PULMONARY FIBROSIS [None]
